FAERS Safety Report 22081833 (Version 2)
Quarter: 2023Q1

REPORT INFORMATION
  Report Type: Report from Study
  Country: GR (occurrence: GR)
  Receive Date: 20230310
  Receipt Date: 20230329
  Transmission Date: 20230417
  Serious: Yes (Death, Life-Threatening, Hospitalization)
  Sender: FDA-Public Use
  Company Number: GR-ABBVIE-4334281

PATIENT
  Age: 73 Year
  Sex: Female
  Weight: 65 kg

DRUGS (10)
  1. VENETOCLAX [Suspect]
     Active Substance: VENETOCLAX
     Indication: Chronic lymphocytic leukaemia
     Route: 048
     Dates: start: 20211108, end: 20221224
  2. Prednisolone (Prezolon) [Concomitant]
     Indication: Systemic lupus erythematosus
     Dosage: 2.5 MILLIGRAM
     Route: 048
     Dates: start: 20211005, end: 20221229
  3. valaciclovir (Valtrex) [Concomitant]
     Indication: Infection prophylaxis
     Route: 048
     Dates: start: 20171025, end: 20230111
  4. ALLOPURINOL [Concomitant]
     Active Substance: ALLOPURINOL
     Indication: Prophylaxis
     Route: 048
     Dates: start: 20080314, end: 20230111
  5. LANSOPRAZOLE [Concomitant]
     Active Substance: LANSOPRAZOLE
     Indication: Gastrointestinal disorder prophylaxis
     Route: 048
     Dates: start: 20161014, end: 20230111
  6. Folic acid (Fanolit) [Concomitant]
     Indication: Anaemia prophylaxis
     Route: 048
     Dates: start: 20080314, end: 20230111
  7. SULFAMETHOXAZOLE\TRIMETHOPRIM [Concomitant]
     Active Substance: SULFAMETHOXAZOLE\TRIMETHOPRIM
     Indication: Infection prophylaxis
     Dosage: 800+160GMG
     Route: 048
     Dates: start: 20080314, end: 20230111
  8. SINGULAIR [Concomitant]
     Active Substance: MONTELUKAST SODIUM
     Indication: COVID-19
     Route: 042
     Dates: start: 20221227, end: 20230111
  9. Piperacillin (Tazocin) [Concomitant]
     Indication: COVID-19
     Route: 042
     Dates: start: 20221224, end: 20221226
  10. Meropenem (Meronem) [Concomitant]
     Indication: COVID-19
     Route: 042
     Dates: start: 20221226, end: 20230110

REACTIONS (2)
  - COVID-19 [Fatal]
  - Back pain [Not Recovered/Not Resolved]

NARRATIVE: CASE EVENT DATE: 20221224
